FAERS Safety Report 7550775-8 (Version None)
Quarter: 2011Q2

REPORT INFORMATION
  Report Type: 
  Country: None (occurrence: None)
  Receive Date: 20110616
  Receipt Date: 20110601
  Transmission Date: 20111010
  Serious: Yes (Other)
  Sender: FDA-Public Use
  Company Number: CA-JNJFOC-20110601968

PATIENT
  Sex: Male
  Weight: 104 kg

DRUGS (2)
  1. METHOTREXATE [Concomitant]
     Dosage: 2.5MG TABS, 11 TABS EVERY WEEK
     Route: 065
  2. REMICADE [Suspect]
     Indication: ANKYLOSING SPONDYLITIS
     Route: 042
     Dates: start: 20050901

REACTIONS (2)
  - BACK PAIN [None]
  - NEPHROLITHIASIS [None]
